FAERS Safety Report 6384582-9 (Version None)
Quarter: 2009Q4

REPORT INFORMATION
  Report Type: 
  Country: None (occurrence: None)
  Receive Date: 20091001
  Receipt Date: 20090918
  Transmission Date: 20100525
  Serious: Yes (Other)
  Sender: FDA-Public Use
  Company Number: PHHY2009MX40308

PATIENT
  Sex: Female

DRUGS (4)
  1. DIOVAN HCT [Suspect]
     Indication: HYPERTENSION
     Dosage: 80/12.5MG PER DAY
     Route: 048
     Dates: start: 20050901, end: 20090914
  2. DIOVAN HCT [Suspect]
     Dosage: 80/12.5MG 2 TABLETS PER DAY
     Route: 048
     Dates: start: 20090914
  3. METOPROLOL [Concomitant]
     Indication: HYPERTENSION
     Dosage: 2 DF, QD
  4. GLYBURIDE AND METFORMIN HCL [Concomitant]
     Indication: DIABETES MELLITUS
     Dosage: 2 DF, QD

REACTIONS (3)
  - ABDOMINAL HERNIA [None]
  - ABDOMINAL HERNIA REPAIR [None]
  - HYPERTENSION [None]
